FAERS Safety Report 17219793 (Version 1)
Quarter: 2019Q4

REPORT INFORMATION
  Report Type: Spontaneous
  Country: US (occurrence: US)
  Receive Date: 20191231
  Receipt Date: 20191231
  Transmission Date: 20200122
  Serious: No
  Sender: FDA-Public Use
  Company Number: US-SA-2019SA354153

PATIENT
  Age: 54 Year
  Sex: Female

DRUGS (1)
  1. KEVZARA [Suspect]
     Active Substance: SARILUMAB
     Dosage: 200 MG, OTHER
     Route: 058
     Dates: start: 201909

REACTIONS (5)
  - Rhinorrhoea [Unknown]
  - Nasopharyngitis [Unknown]
  - Pain [Unknown]
  - Influenza [Unknown]
  - Chills [Unknown]

NARRATIVE: CASE EVENT DATE: 2019
